FAERS Safety Report 19812646 (Version 3)
Quarter: 2021Q4

REPORT INFORMATION
  Report Type: Other
  Country: CA (occurrence: CA)
  Receive Date: 20210910
  Receipt Date: 20211202
  Transmission Date: 20220303
  Serious: Yes (Hospitalization, Other)
  Sender: FDA-Public Use
  Company Number: CA-CELLTRION INC.-2021CA009476

PATIENT

DRUGS (26)
  1. RITUXIMAB [Suspect]
     Active Substance: RITUXIMAB
     Indication: Hodgkin^s disease
     Route: 065
  2. ESBRIET [Suspect]
     Active Substance: PIRFENIDONE
     Indication: Idiopathic pulmonary fibrosis
     Dosage: 267 MILLIGRAM, 3 EVERY 1 DAYS
     Route: 048
  3. ESBRIET [Suspect]
     Active Substance: PIRFENIDONE
     Dosage: 267 MILLIGRAM, 3 EVERY 1 DAYS
     Route: 048
  4. ESBRIET [Suspect]
     Active Substance: PIRFENIDONE
     Dosage: 534 MILLIGRAM, 3 EVERY 1 DAYS
     Route: 048
  5. ESBRIET [Suspect]
     Active Substance: PIRFENIDONE
     Dosage: 801 MILLIGRAM, 3 EVERY 1 DAYS
     Route: 048
  6. ESBRIET [Suspect]
     Active Substance: PIRFENIDONE
     Dosage: 534 MILLIGRAM, 3 EVERY 1 DAYS
     Route: 048
  7. ESBRIET [Suspect]
     Active Substance: PIRFENIDONE
     Dosage: 267 MILLIGRAM, 3 EVERY 1 DAYS
     Route: 048
  8. ESBRIET [Suspect]
     Active Substance: PIRFENIDONE
     Dosage: 801 MILLIGRAM, 3 EVERY 1 DAYS
     Route: 048
  9. ESBRIET [Suspect]
     Active Substance: PIRFENIDONE
     Dosage: 534 MILLIGRAM, 3 EVERY 1 DAYS
     Route: 048
  10. ESBRIET [Suspect]
     Active Substance: PIRFENIDONE
     Dosage: 801 MILLIGRAM, 3 EVERY 1 DAYS
     Route: 048
  11. ESBRIET [Suspect]
     Active Substance: PIRFENIDONE
     Dosage: 3 EVERY 1 DAYS
     Route: 048
  12. ESBRIET [Suspect]
     Active Substance: PIRFENIDONE
     Indication: Idiopathic pulmonary fibrosis
     Dosage: 1335 MG
     Route: 048
  13. ESBRIET [Suspect]
     Active Substance: PIRFENIDONE
     Dosage: 1068 MG, 1 EVERY 1 DAYS
     Route: 048
  14. ACETAMINOPHEN [Concomitant]
     Active Substance: ACETAMINOPHEN
  15. ALLOPURINOL [Concomitant]
     Active Substance: ALLOPURINOL
  16. FERROUS FUMARATE [Concomitant]
     Active Substance: FERROUS FUMARATE
  17. FLUOROURACIL [Concomitant]
     Active Substance: FLUOROURACIL
  18. HYDROMORPHONE [Concomitant]
     Active Substance: HYDROMORPHONE
  19. IRBESARTAN [Concomitant]
     Active Substance: IRBESARTAN
     Route: 065
  20. NYSTATIN [Concomitant]
     Active Substance: NYSTATIN
  21. ONDANSETRON [Concomitant]
     Active Substance: ONDANSETRON
  22. PANTOPRAZOLE [Concomitant]
     Active Substance: PANTOPRAZOLE
  23. PREDNISONE [Concomitant]
     Active Substance: PREDNISONE
     Dosage: UNK
     Route: 065
  24. RABEPRAZOLE [Concomitant]
     Active Substance: RABEPRAZOLE
  25. RIVAROXABAN [Concomitant]
     Active Substance: RIVAROXABAN
     Route: 065
  26. SULFAMETHOXAZOLE\TRIMETHOPRIM [Concomitant]
     Active Substance: SULFAMETHOXAZOLE\TRIMETHOPRIM

REACTIONS (39)
  - Aortic aneurysm [Recovered/Resolved]
  - Alanine aminotransferase increased [Recovered/Resolved]
  - Appetite disorder [Recovered/Resolved]
  - Computerised tomogram abnormal [Recovered/Resolved]
  - Chest discomfort [Recovered/Resolved]
  - Diverticulum [Recovered/Resolved]
  - Diverticulum intestinal [Recovered/Resolved]
  - Epstein-Barr virus associated lymphoma [Recovered/Resolved]
  - Fall [Recovered/Resolved]
  - Hepatic steatosis [Recovered/Resolved]
  - Hodgkin^s disease [Recovered/Resolved]
  - Hodgkin^s disease stage IV [Recovered/Resolved]
  - Lethargy [Recovered/Resolved]
  - Lung consolidation [Recovered/Resolved]
  - Pulmonary artery dilatation [Recovered/Resolved]
  - Squamous cell carcinoma of skin [Recovered/Resolved]
  - Lymphoma [Recovered/Resolved]
  - Abdominal discomfort [Recovered/Resolved]
  - Asthenia [Recovered/Resolved]
  - Atrial fibrillation [Recovered/Resolved]
  - Back pain [Recovered/Resolved]
  - Blood lactate dehydrogenase increased [Recovered/Resolved]
  - Cough [Recovered/Resolved]
  - Dizziness [Recovered/Resolved]
  - Dyspnoea [Recovered/Resolved]
  - Fatigue [Recovered/Resolved]
  - Gastrointestinal disorder [Recovered/Resolved]
  - Headache [Recovered/Resolved]
  - Hypotension [Recovered/Resolved]
  - Interstitial lung disease [Recovered/Resolved]
  - Lymphadenopathy [Recovered/Resolved]
  - Muscular weakness [Recovered/Resolved]
  - Nausea [Recovered/Resolved]
  - Night sweats [Recovered/Resolved]
  - Orthostatic hypotension [Recovered/Resolved]
  - Pneumonitis [Recovered/Resolved]
  - Respiratory failure [Recovered/Resolved]
  - Weight decreased [Recovered/Resolved]
  - Off label use [Unknown]
